FAERS Safety Report 7896535-X (Version None)
Quarter: 2011Q4

REPORT INFORMATION
  Report Type: 
  Country: None (occurrence: None)
  Receive Date: 20111106
  Receipt Date: 20111029
  Transmission Date: 20120403
  Serious: No
  Sender: FDA-Public Use
  Company Number: US-AMGEN-USASP2011043164

PATIENT
  Age: 87 Year
  Sex: Male

DRUGS (2)
  1. ENBREL [Suspect]
     Indication: PSORIASIS
     Dosage: 25 MG, 2 TIMES/WK
     Route: 058
     Dates: start: 20080101
  2. HUMIRA [Concomitant]

REACTIONS (3)
  - PEMPHIGOID [None]
  - OEDEMA PERIPHERAL [None]
  - FUNGAL INFECTION [None]
